FAERS Safety Report 6883371-6 (Version None)
Quarter: 2010Q3

REPORT INFORMATION
  Report Type: 
  Country: None (occurrence: None)
  Receive Date: 20100727
  Receipt Date: 20081124
  Transmission Date: 20110219
  Serious: No
  Sender: FDA-Public Use
  Company Number: US-PFIZER INC-2005058819

PATIENT
  Sex: Female

DRUGS (4)
  1. CELEBREX [Suspect]
     Indication: BURSITIS
  2. CELEBREX [Suspect]
     Indication: TENDONITIS
  3. BEXTRA [Suspect]
     Indication: BURSITIS
     Route: 065
     Dates: start: 20010101
  4. BEXTRA [Suspect]
     Indication: TENDONITIS

REACTIONS (3)
  - LARYNGITIS [None]
  - PAIN [None]
  - WEIGHT DECREASED [None]
